FAERS Safety Report 8215912 (Version 3)
Quarter: 2013Q2

REPORT INFORMATION
  Report Type: Spontaneous
  Country: US (occurrence: US)
  Receive Date: 20111031
  Receipt Date: 20130409
  Transmission Date: 20140414
  Serious: Yes (Other)
  Sender: FDA-Public Use
  Company Number: US-BIOMARINP-001863

PATIENT
  Age: 0 Year
  Sex: Male
  Weight: 4.39 kg

DRUGS (4)
  1. KUVAN [Suspect]
     Indication: PHENYLKETONURIA
     Dosage: 1500MG,QD
     Route: 064
     Dates: start: 20090130
  2. PROCARDIA [Concomitant]
     Indication: FOETAL EXPOSURE DURING PREGNANCY
     Dosage: 60MG,QD
     Route: 064
  3. HYDROCHLOROTHIAZIDE [Concomitant]
     Indication: FOETAL EXPOSURE DURING PREGNANCY
     Dosage: 12.5MG,QD
     Route: 064
  4. PRENATAL VITAMINS                  /01549301/ [Concomitant]
     Indication: FOETAL EXPOSURE DURING PREGNANCY
     Route: 064

REACTIONS (3)
  - Respiratory distress [Unknown]
  - Hyperbilirubinaemia [Unknown]
  - Premature baby [Unknown]
